FAERS Safety Report 6672055-5 (Version None)
Quarter: 2010Q2

REPORT INFORMATION
  Report Type: 
  Country: None (occurrence: None)
  Receive Date: 20100406
  Receipt Date: 20100322
  Transmission Date: 20101027
  Serious: Yes (Hospitalization, Other)
  Sender: FDA-Public Use
  Company Number: AUR-APL-2010-00657

PATIENT
  Age: 68 Year
  Sex: Female

DRUGS (10)
  1. SIMVASTATIN [Suspect]
     Indication: CARDIAC DISORDER
     Dosage: 80MG - QD
  2. CLARITHROMYCIN [Suspect]
     Indication: LOWER RESPIRATORY TRACT INFECTION
     Dosage: 250MG  - BID
  3. ASPIRIN [Concomitant]
  4. DIAZEPAM [Concomitant]
  5. DIGOXIN [Concomitant]
  6. ESCITALOPRAM [Concomitant]
  7. LITHIUM CARBONATE [Concomitant]
  8. PERINDOPRIL [Concomitant]
  9. QUETIAPINE [Concomitant]
  10. NOCTE [Concomitant]

REACTIONS (9)
  - APHASIA [None]
  - BLOOD IRON DECREASED [None]
  - CATATONIA [None]
  - DRUG INTERACTION [None]
  - HYPOTENSION [None]
  - LABILE BLOOD PRESSURE [None]
  - LOWER RESPIRATORY TRACT INFECTION [None]
  - NEUROLEPTIC MALIGNANT SYNDROME [None]
  - TACHYCARDIA [None]
